FAERS Safety Report 9083505 (Version 2)
Quarter: 2014Q1

REPORT INFORMATION
  Report Type: Report from Study
  Country: US (occurrence: US)
  Receive Date: 20130130
  Receipt Date: 20140124
  Transmission Date: 20141002
  Serious: Yes (Hospitalization, Other)
  Sender: FDA-Public Use
  Company Number: US-ALEXION-A201300077

PATIENT
  Age: 32 Year
  Sex: Female

DRUGS (1)
  1. SOLIRIS [Suspect]
     Indication: HAEMOLYTIC URAEMIC SYNDROME
     Dosage: UNK
     Route: 042

REACTIONS (10)
  - Meningitis [Unknown]
  - Influenza like illness [Unknown]
  - Transfusion [Unknown]
  - Dialysis [Unknown]
  - Fatigue [Unknown]
  - Diarrhoea [Unknown]
  - Confusional state [Unknown]
  - Back pain [Unknown]
  - Arthralgia [Unknown]
  - Quality of life decreased [Unknown]
